FAERS Safety Report 4587570-8 (Version None)
Quarter: 2005Q1

REPORT INFORMATION
  Report Type: 
  Country: None (occurrence: None)
  Receive Date: 20050215
  Receipt Date: 20020304
  Transmission Date: 20050727
  Serious: No
  Sender: FDA-Public Use
  Company Number: C02-C-002

PATIENT
  Age: 29 Year
  Sex: Male
  Weight: 95.2554 kg

DRUGS (2)
  1. LITHIUM CARBONATE [Suspect]
     Indication: MANIA
  2. XANAX [Concomitant]

REACTIONS (5)
  - DISTURBANCE IN ATTENTION [None]
  - DRUG INEFFECTIVE [None]
  - FEELING JITTERY [None]
  - MANIA [None]
  - READING DISORDER [None]
